FAERS Safety Report 7177835-8 (Version None)
Quarter: 2010Q4

REPORT INFORMATION
  Report Type: 
  Country: None (occurrence: None)
  Receive Date: 20101220
  Receipt Date: 20101213
  Transmission Date: 20110411
  Serious: Yes (Death, Hospitalization)
  Sender: FDA-Public Use
  Company Number: GB-TEVA-260202ISR

PATIENT
  Age: 52 Year
  Sex: Male
  Weight: 84 kg

DRUGS (2)
  1. VENLAFAXINE [Suspect]
     Indication: ANXIETY
     Route: 048
     Dates: start: 20100115
  2. VENLAFAXINE [Suspect]
     Indication: DEPRESSION

REACTIONS (3)
  - ACUTE CORONARY SYNDROME [None]
  - ACUTE MYOCARDIAL INFARCTION [None]
  - CHEST PAIN [None]
